FAERS Safety Report 24368620 (Version 3)
Quarter: 2024Q4

REPORT INFORMATION
  Report Type: Report from Study
  Country: JP (occurrence: JP)
  Receive Date: 20240926
  Receipt Date: 20241219
  Transmission Date: 20250115
  Serious: Yes (Life-Threatening, Hospitalization, Disabling, Other)
  Sender: TAKEDA
  Company Number: JP-TAKEDA-2024TJP014066

PATIENT
  Age: 59 Year
  Sex: Male

DRUGS (4)
  1. TEDUGLUTIDE [Suspect]
     Active Substance: TEDUGLUTIDE
     Indication: Short-bowel syndrome
     Dosage: UNK UNK, QD
     Dates: start: 20240509, end: 202406
  2. TEDUGLUTIDE [Suspect]
     Active Substance: TEDUGLUTIDE
     Dosage: UNK UNK, QD
     Dates: start: 202407
  3. TEDUGLUTIDE [Suspect]
     Active Substance: TEDUGLUTIDE
     Dosage: UNK
  4. TEDUGLUTIDE [Suspect]
     Active Substance: TEDUGLUTIDE

REACTIONS (9)
  - Device related infection [Unknown]
  - Device related infection [Recovered/Resolved]
  - Acute kidney injury [Recovered/Resolved]
  - Device occlusion [Unknown]
  - Device occlusion [Recovering/Resolving]
  - Blood pressure decreased [Unknown]
  - Skin papilloma [Unknown]
  - Stoma complication [Unknown]
  - Stoma complication [Unknown]

NARRATIVE: CASE EVENT DATE: 20240601
